FAERS Safety Report 16433693 (Version 1)
Quarter: 2019Q2

REPORT INFORMATION
  Report Type: Spontaneous
  Country: US (occurrence: US)
  Receive Date: 20190507
  Receipt Date: 20190507
  Transmission Date: 20190711
  Serious: Yes (Other)
  Sender: FDA-Public Use
  Company Number: None

PATIENT
  Age: 60 Year
  Sex: Female

DRUGS (2)
  1. DALFAMPRIDINE 10MG [Suspect]
     Active Substance: DALFAMPRIDINE
     Indication: MULTIPLE SCLEROSIS
     Route: 048
     Dates: start: 201812, end: 201904
  2. DALFAMPRIDINE 10MG [Suspect]
     Active Substance: DALFAMPRIDINE

REACTIONS (4)
  - Muscular weakness [None]
  - Pain in extremity [None]
  - Drug ineffective [None]
  - Tremor [None]
